FAERS Safety Report 6599201-6 (Version None)
Quarter: 2010Q1

REPORT INFORMATION
  Report Type: 
  Country: None (occurrence: None)
  Receive Date: 20100224
  Receipt Date: 20100217
  Transmission Date: 20100710
  Serious: Yes (Death, Hospitalization)
  Sender: FDA-Public Use
  Company Number: DE-WYE-H13490310

PATIENT
  Age: 74 Year
  Sex: Female

DRUGS (7)
  1. AMIODARONE HCL [Suspect]
     Indication: ATRIAL FIBRILLATION
     Route: 048
     Dates: start: 20090301, end: 20100101
  2. ACETYLSALICYLIC ACID [Concomitant]
     Dates: start: 20090701, end: 20100101
  3. PANTOZOL [Concomitant]
     Dates: start: 20090701, end: 20100101
  4. DIOVAN [Concomitant]
     Dates: start: 20090701, end: 20100101
  5. OPIPRAMOL [Concomitant]
     Dates: start: 20090701, end: 20100101
  6. HEPARIN [Concomitant]
     Indication: THROMBOSIS PROPHYLAXIS
     Dosage: NOT PROVIDED
  7. LOCOL [Concomitant]
     Dates: start: 20090701, end: 20100101

REACTIONS (6)
  - ACUTE RESPIRATORY DISTRESS SYNDROME [None]
  - BRONCHOPNEUMONIA [None]
  - DRUG EFFECT DECREASED [None]
  - MULTI-ORGAN FAILURE [None]
  - PULMONARY FIBROSIS [None]
  - SEPSIS [None]
